FAERS Safety Report 4308529-1 (Version None)
Quarter: 2004Q1

REPORT INFORMATION
  Report Type: 
  Country: None (occurrence: None)
  Receive Date: 20040225
  Receipt Date: 20030108
  Transmission Date: 20041129
  Serious: Yes (Hospitalization)
  Sender: FDA-Public Use
  Company Number: WAES 0301USA00623

PATIENT
  Age: 53 Year
  Sex: Female

DRUGS (4)
  1. ZOCOR [Suspect]
     Dosage: 10 MG/DAILY/PO
     Route: 048
     Dates: start: 20020901, end: 20021001
  2. ALTACE [Concomitant]
  3. PAXIL CR [Concomitant]
  4. ZYRTEC [Concomitant]

REACTIONS (1)
  - ARTHRALGIA [None]
